FAERS Safety Report 5995644-X (Version None)
Quarter: 2008Q4

REPORT INFORMATION
  Report Type: 
  Country: None (occurrence: None)
  Receive Date: 20081212
  Receipt Date: 20081203
  Transmission Date: 20090506
  Serious: Yes (Other)
  Sender: FDA-Public Use
  Company Number: US-AMGEN-QUU316129

PATIENT
  Sex: Female
  Weight: 61.3 kg

DRUGS (7)
  1. ENBREL [Suspect]
     Indication: PSORIASIS
     Route: 058
     Dates: start: 20030827, end: 20080901
  2. ENBREL [Suspect]
     Indication: PSORIATIC ARTHROPATHY
  3. HYDROCHLOROTHIAZIDE [Concomitant]
     Dates: start: 20060101
  4. IBUPROFEN [Concomitant]
  5. GLUCOSAMINE W/CHONDROITIN SULFATES [Concomitant]
     Dates: start: 20030101
  6. MULTI-VITAMINS [Concomitant]
  7. UNSPECIFIED TOPICAL PRODUCT [Concomitant]

REACTIONS (7)
  - HYPERTENSION [None]
  - HYSTERECTOMY [None]
  - LYME DISEASE [None]
  - MOTOR NEURONE DISEASE [None]
  - SALPINGO-OOPHORECTOMY [None]
  - TENDONITIS [None]
  - UPPER MOTOR NEURONE LESION [None]
